FAERS Safety Report 21231919 (Version 1)
Quarter: 2022Q3

REPORT INFORMATION
  Report Type: Report from Study
  Country: IT (occurrence: IT)
  Receive Date: 20220819
  Receipt Date: 20220819
  Transmission Date: 20221026
  Serious: Yes (Hospitalization)
  Sender: FDA-Public Use
  Company Number: None

PATIENT
  Age: 47 Year
  Sex: Male

DRUGS (6)
  1. DOXORUBICIN HYDROCHLORIDE [Suspect]
     Active Substance: DOXORUBICIN HYDROCHLORIDE
     Indication: B-cell lymphoma
     Dosage: FIRST CYCLE OF CHEMOTHERAPY R-DA-EPOCH, DOXORUBICIN HYDROCHLORIDE , UNIT DOSE : 1 DF , DURATION : 5
     Dates: start: 20220416, end: 20220421
  2. ETOPOSIDE [Suspect]
     Active Substance: ETOPOSIDE
     Indication: B-cell lymphoma
     Dosage: FIRST CYCLE OF R-DA-EPOCH CHEMOTHERAPY , UNIT DOSE : 1 DF , DURATION : 5 DAYS
     Dates: start: 20220416, end: 20220421
  3. VINCRISTINE [Suspect]
     Active Substance: VINCRISTINE
     Indication: B-cell lymphoma
     Dosage: FIRST CYCLE OF CHEMOTHERAPY R-DA-EPOCH, VINCRISTINA , UNIT DOSE :1 DF  , FREQUENCY TIME : 1 CYCLICAL
     Dates: start: 20220416, end: 20220421
  4. CYCLOPHOSPHAMIDE [Suspect]
     Active Substance: CYCLOPHOSPHAMIDE
     Indication: B-cell lymphoma
     Dosage: FIRST CYCLE OF R-DA-EPOCH CHEMOTHERAPY, CYCLOPHOSPHAMIDE,UNIT DOSE : 1 DF , DURATION : 5 DAYS
     Dates: start: 20220416, end: 20220421
  5. RITUXIMAB [Suspect]
     Active Substance: RITUXIMAB
     Indication: B-cell lymphoma
     Dosage: FIRST CYCLE OF R-DA-EPOCH CHEMOTHERAPY , UNIT DOSE : 1 DF , FREQUENCY TIME : 1 CYCLICAL  , DURATION
     Dates: start: 20220416, end: 20220421
  6. PREDNISONE [Concomitant]
     Active Substance: PREDNISONE
     Indication: B-cell lymphoma
     Dosage: FIRST CYCLE OF R-DA-EPOCH CHEMOTHERAPY , DURATION : 5 DAYS
     Dates: start: 20220416, end: 20220421

REACTIONS (3)
  - Colitis [Recovering/Resolving]
  - Gastrointestinal wall thickening [Recovering/Resolving]
  - Enteritis [Recovering/Resolving]

NARRATIVE: CASE EVENT DATE: 20220509
